FAERS Safety Report 14700243 (Version 1)
Quarter: 2018Q1

REPORT INFORMATION
  Report Type: Spontaneous
  Country: DE (occurrence: DE)
  Receive Date: 20180330
  Receipt Date: 20180330
  Transmission Date: 20180509
  Serious: Yes (Hospitalization, Other)
  Sender: FDA-Public Use
  Company Number: DE-GILEAD-2018-0329579

PATIENT
  Age: 61 Year
  Sex: Female
  Weight: 58 kg

DRUGS (19)
  1. SODIUM [Concomitant]
     Active Substance: SODIUM
     Dosage: UNK
     Route: 065
  2. DOMINAL                            /00002701/ [Concomitant]
     Active Substance: ASPIRIN
     Dosage: 80 MG, UNK
     Route: 065
  3. BISOPROLOL                         /00802602/ [Concomitant]
     Active Substance: BISOPROLOL
     Dosage: 10 MG, UNK
     Route: 065
  4. LEVOFLOXACIN                       /01278903/ [Concomitant]
     Active Substance: LEVOFLOXACIN
     Dosage: 500 MG, UNK
     Route: 065
  5. CEFUROXIM                          /00454601/ [Concomitant]
     Dosage: 500 MG, UNK
     Route: 065
  6. DESMOSPRAY                         /00361901/ [Concomitant]
     Route: 045
  7. CALCIFEROL [Concomitant]
     Active Substance: ERGOCALCIFEROL
     Dosage: 0.25 UG, UNK
     Route: 065
  8. PALLADON [Concomitant]
     Active Substance: HYDROMORPHONE
     Dosage: UNK UNK, PRN
     Route: 065
  9. PARACODIN                          /00063001/ [Concomitant]
     Dosage: UNK UNK, PRN
     Route: 065
  10. ASA [Concomitant]
     Active Substance: ASPIRIN
     Dosage: 100 MG, UNK
     Route: 065
  11. ZYDELIG [Suspect]
     Active Substance: IDELALISIB
     Indication: NON-HODGKIN^S LYMPHOMA
     Route: 065
  12. MINIRIN [Concomitant]
     Active Substance: DESMOPRESSIN ACETATE
     Route: 065
  13. TRIMIPRAMIN                        /00051802/ [Concomitant]
     Active Substance: TRIMIPRAMINE MALEATE
     Dosage: 100 MG, UNK
     Route: 065
  14. KALINOR /00031402/ [Concomitant]
     Active Substance: POTASSIUM CHLORIDE
     Route: 065
  15. PANTOPRAZOL                        /01263201/ [Concomitant]
     Active Substance: PANTOPRAZOLE
     Dosage: 40 MG, UNK
     Route: 065
  16. CLEXANE [Concomitant]
     Active Substance: ENOXAPARIN SODIUM
     Dosage: 0.4 ML, UNK
     Route: 065
  17. COTRIM FORTE [Suspect]
     Active Substance: SULFAMETHOXAZOLE\TRIMETHOPRIM
     Indication: PRODUCT USED FOR UNKNOWN INDICATION
     Route: 065
  18. HYDROMORPHONE [Concomitant]
     Active Substance: HYDROMORPHONE
     Dosage: 8 MG, UNK
     Route: 065
  19. IBUPROFEN. [Concomitant]
     Active Substance: IBUPROFEN

REACTIONS (1)
  - Agranulocytosis [Not Recovered/Not Resolved]
